FAERS Safety Report 17802129 (Version 1)
Quarter: 2020Q2

REPORT INFORMATION
  Report Type: Spontaneous
  Country: US (occurrence: US)
  Receive Date: 20200519
  Receipt Date: 20200519
  Transmission Date: 20200714
  Serious: No
  Sender: FDA-Public Use
  Company Number: US-PFIZER INC-2020146635

PATIENT
  Age: 54 Year
  Sex: Female

DRUGS (2)
  1. XELJANZ [Suspect]
     Active Substance: TOFACITINIB CITRATE
     Dosage: 5 MG, TWICE DAILY
     Route: 048
     Dates: start: 201911
  2. XELJANZ [Suspect]
     Active Substance: TOFACITINIB CITRATE
     Indication: RHEUMATOID ARTHRITIS
     Dosage: 5MG, ONCE DAILY
     Route: 048
     Dates: start: 201911

REACTIONS (2)
  - Intentional product use issue [Unknown]
  - Therapeutic product effect delayed [Unknown]
